FAERS Safety Report 22189914 (Version 1)
Quarter: 2023Q2

REPORT INFORMATION
  Report Type: Spontaneous
  Country: US (occurrence: US)
  Receive Date: 20230410
  Receipt Date: 20230410
  Transmission Date: 20230721
  Serious: No
  Sender: FDA-Public Use
  Company Number: US-ABBVIE-4721498

PATIENT
  Sex: Female

DRUGS (4)
  1. DEPAKOTE ER [Suspect]
     Active Substance: DIVALPROEX SODIUM
     Indication: Dementia Alzheimer^s type
     Route: 048
  2. DEPAKOTE ER [Suspect]
     Active Substance: DIVALPROEX SODIUM
     Indication: Dementia Alzheimer^s type
     Dosage: TIME INTERVAL: 0.33333333 DAYS
     Route: 048
  3. DEPAKOTE ER [Suspect]
     Active Substance: DIVALPROEX SODIUM
     Indication: Dementia Alzheimer^s type
     Route: 048
  4. DEPAKOTE ER [Suspect]
     Active Substance: DIVALPROEX SODIUM
     Indication: Dementia Alzheimer^s type
     Route: 048

REACTIONS (2)
  - Somnolence [Recovered/Resolved]
  - Overdose [Unknown]
